FAERS Safety Report 19966911 (Version 1)
Quarter: 2021Q4

REPORT INFORMATION
  Report Type: Spontaneous
  Country: US (occurrence: US)
  Receive Date: 20211019
  Receipt Date: 20211019
  Transmission Date: 20220303
  Serious: No
  Sender: FDA-Public Use
  Company Number: US-TEVA-2021-US-1965054

PATIENT
  Sex: Male

DRUGS (1)
  1. TESTOSTERONE [Suspect]
     Active Substance: TESTOSTERONE
     Indication: Product used for unknown indication
     Dosage: FORM OF ADMIN: TOPICAL SOLUTION, DOSE: DOSE IS 30 MG UNDER EACH ARM ONCE DAILY
     Route: 061

REACTIONS (2)
  - Application site rash [Recovering/Resolving]
  - Off label use [Unknown]
